FAERS Safety Report 4745288-2 (Version None)
Quarter: 2005Q3

REPORT INFORMATION
  Report Type: 
  Country: None (occurrence: None)
  Receive Date: 20050812
  Receipt Date: 20050802
  Transmission Date: 20060218
  Serious: Yes (Life-Threatening, Hospitalization)
  Sender: FDA-Public Use
  Company Number: HQWYE871430JUN05

PATIENT
  Age: 72 Year
  Sex: Male

DRUGS (9)
  1. CORDARONE [Suspect]
     Indication: ATRIAL FIBRILLATION
     Dosage: 100 MG 1X PER 1 DAY, ORAL
     Route: 048
     Dates: start: 20010101, end: 20050610
  2. ARAVA [Suspect]
     Indication: RHEUMATOID ARTHRITIS
     Dosage: 10 MG 1X PER 1 DAY, ORAL
     Route: 048
     Dates: start: 20050115
  3. PREVISCAN (FLUINDIONE, ) [Suspect]
     Dosage: 20 MG TABLET;ORAL
     Route: 048
     Dates: end: 20050607
  4. BISOPROLOL FUMARATE [Concomitant]
  5. COVERSYL (PERINDOPRIL) [Concomitant]
  6. FUROSEMIDE [Concomitant]
  7. CORTANCYL (PREDNISONE) [Concomitant]
  8. OROCAL (CALCIUM CARBONATE) [Concomitant]
  9. DOLIPRNAE (PARACETAMOL) [Concomitant]

REACTIONS (17)
  - BLOOD THYROID STIMULATING HORMONE DECREASED [None]
  - CREATININE RENAL CLEARANCE DECREASED [None]
  - DIARRHOEA [None]
  - FALL [None]
  - HEPATOCELLULAR DAMAGE [None]
  - HYPERTHYROIDISM [None]
  - INTERNATIONAL NORMALISED RATIO INCREASED [None]
  - LOBAR PNEUMONIA [None]
  - LUNG DISORDER [None]
  - LYMPHADENOPATHY [None]
  - MALAISE [None]
  - PLEURAL EFFUSION [None]
  - PULMONARY FIBROSIS [None]
  - SUBDURAL HAEMATOMA [None]
  - THYROXINE FREE INCREASED [None]
  - TREMOR [None]
  - VENTRICULAR TACHYCARDIA [None]
